FAERS Safety Report 4279870-6 (Version None)
Quarter: 2004Q1

REPORT INFORMATION
  Report Type: 
  Country: None (occurrence: None)
  Receive Date: 20040126
  Receipt Date: 20040114
  Transmission Date: 20041129
  Serious: Yes (Death)
  Sender: FDA-Public Use
  Company Number: APP200400058

PATIENT
  Age: 76 Year
  Sex: 0

DRUGS (4)
  1. VINBLASTINE SULFATE INJECTION (VINBLASTINE SULFATE) [Suspect]
     Indication: BLADDER CANCER
     Dosage: 20 MG/M2, UNK, INTRAVENOUS
     Route: 042
  2. METHOTREXATE INJECTION USP (METHOTREXATE) [Suspect]
     Indication: BLADDER CANCER
     Dosage: 200 MG/M2, UNK, INTRAVENOUS
     Route: 042
  3. DOXORUBICIN HYDROCHLORIDE INJECTION, USP (DOXORUBICIN HYDROCHLORIDE) [Suspect]
     Indication: BLADDER CANCER
     Dosage: 200 MG/M2, UNK, INTRAVENOUS
     Route: 042
  4. CISPLATIN [Suspect]
     Indication: BLADDER CANCER
     Dosage: 460 MG/M2, UNK, INTRAVENOUS
     Route: 042

REACTIONS (2)
  - ACUTE MYELOID LEUKAEMIA [None]
  - KARYOTYPE ANALYSIS ABNORMAL [None]
